FAERS Safety Report 14710157 (Version 1)
Quarter: 2018Q2

REPORT INFORMATION
  Report Type: Spontaneous
  Country: US (occurrence: US)
  Receive Date: 20180403
  Receipt Date: 20180403
  Transmission Date: 20180711
  Serious: No
  Sender: FDA-Public Use
  Company Number: US-ROCHE-1912512

PATIENT
  Sex: Male
  Weight: 100.79 kg

DRUGS (13)
  1. ATORVASTATIN [Concomitant]
     Active Substance: ATORVASTATIN
  2. FUROSEMIDE. [Concomitant]
     Active Substance: FUROSEMIDE
  3. CIALIS [Concomitant]
     Active Substance: TADALAFIL
  4. LISINOPRIL. [Concomitant]
     Active Substance: LISINOPRIL
  5. RANITIDINE. [Concomitant]
     Active Substance: RANITIDINE
  6. ASA [Concomitant]
     Active Substance: ASPIRIN
  7. ERIVEDGE [Suspect]
     Active Substance: VISMODEGIB
     Indication: NEOPLASM MALIGNANT
     Route: 048
     Dates: start: 20170228, end: 20170321
  8. OMEPRAZOLE. [Concomitant]
     Active Substance: OMEPRAZOLE
  9. PLAVIX [Concomitant]
     Active Substance: CLOPIDOGREL BISULFATE
  10. ERIVEDGE [Suspect]
     Active Substance: VISMODEGIB
     Indication: BASAL CELL CARCINOMA
     Route: 048
     Dates: start: 20170307, end: 20170313
  11. VITAMIN D3 [Concomitant]
     Active Substance: CHOLECALCIFEROL
  12. TOUJEO [Concomitant]
     Active Substance: INSULIN GLARGINE
  13. METOPROLOL. [Concomitant]
     Active Substance: METOPROLOL

REACTIONS (8)
  - Dyspnoea [Not Recovered/Not Resolved]
  - Dizziness [Not Recovered/Not Resolved]
  - Vision blurred [Not Recovered/Not Resolved]
  - Fatigue [Recovering/Resolving]
  - Vomiting [Recovering/Resolving]
  - Abdominal discomfort [Recovering/Resolving]
  - Abdominal pain upper [Not Recovered/Not Resolved]
  - Regurgitation [Not Recovered/Not Resolved]
